FAERS Safety Report 23328602 (Version 2)
Quarter: 2024Q1

REPORT INFORMATION
  Report Type: Report from Study
  Country: US (occurrence: US)
  Receive Date: 20231221
  Receipt Date: 20240319
  Transmission Date: 20240410
  Serious: Yes (Other)
  Sender: FDA-Public Use
  Company Number: US-ABBVIE-5505208

PATIENT
  Age: 49 Year
  Sex: Male

DRUGS (2)
  1. VENCLEXTA [Suspect]
     Active Substance: VENETOCLAX
     Indication: Chronic lymphocytic leukaemia
     Route: 048
     Dates: start: 20210501
  2. CALQUENCE [Suspect]
     Active Substance: ACALABRUTINIB
     Indication: Product used for unknown indication
     Route: 065

REACTIONS (7)
  - Autoimmune hepatitis [Not Recovered/Not Resolved]
  - Neoplasm malignant [Unknown]
  - Tinnitus [Recovered/Resolved]
  - Fatigue [Recovered/Resolved]
  - Abdominal discomfort [Unknown]
  - Abdominal pain upper [Recovered/Resolved]
  - Disturbance in attention [Unknown]

NARRATIVE: CASE EVENT DATE: 20210501
